FAERS Safety Report 7491465-X (Version None)
Quarter: 2011Q2

REPORT INFORMATION
  Report Type: 
  Country: None (occurrence: None)
  Receive Date: 20110519
  Receipt Date: 20110511
  Transmission Date: 20111010
  Serious: Yes (Other)
  Sender: FDA-Public Use
  Company Number: PHHY2011NZ37239

PATIENT
  Sex: Male

DRUGS (4)
  1. VOLTAREN [Suspect]
     Indication: MUSCLE STRAIN
     Dosage: UNK
     Route: 048
     Dates: start: 20090701
  2. DICLOFENAC SODIUM [Suspect]
     Indication: MUSCLE STRAIN
     Dosage: 75 MG, UNK
     Route: 048
  3. VOLTAREN [Suspect]
     Dosage: 25 MG, UNK
     Route: 048
     Dates: start: 20100101
  4. VOLTAREN [Suspect]
     Indication: JOINT SPRAIN
     Dosage: 100 MG, UNK
     Route: 048
     Dates: start: 20081201

REACTIONS (7)
  - PAIN IN EXTREMITY [None]
  - MUSCULAR WEAKNESS [None]
  - HYPOAESTHESIA [None]
  - DYSPEPSIA [None]
  - FATIGUE [None]
  - COELIAC DISEASE [None]
  - PARAESTHESIA [None]
